FAERS Safety Report 6258827-X (Version None)
Quarter: 2009Q3

REPORT INFORMATION
  Report Type: 
  Country: None (occurrence: None)
  Receive Date: 20090702
  Receipt Date: 20090629
  Transmission Date: 20100115
  Serious: Yes (Hospitalization, Other)
  Sender: FDA-Public Use
  Company Number: 2009US002478

PATIENT
  Age: 61 Year
  Sex: Female

DRUGS (3)
  1. PROGRAF [Suspect]
     Indication: RENAL TRANSPLANT
     Dosage: D
  2. THYMOGLOBULIN [Suspect]
     Indication: RENAL TRANSPLANT
     Dosage: D
  3. MYCOPHENOLATE MOFETIL [Suspect]
     Indication: RENAL TRANSPLANT
     Dosage: D

REACTIONS (14)
  - ACUTE PULMONARY OEDEMA [None]
  - ACUTE RESPIRATORY DISTRESS SYNDROME [None]
  - DIZZINESS [None]
  - DRUG LEVEL ABOVE THERAPEUTIC [None]
  - HAEMODIALYSIS [None]
  - HEADACHE [None]
  - HYPOPHAGIA [None]
  - KIDNEY TRANSPLANT REJECTION [None]
  - KLEBSIELLA INFECTION [None]
  - RESPIRATORY FAILURE [None]
  - SEPTIC SHOCK [None]
  - STRONGYLOIDIASIS [None]
  - SUPERINFECTION [None]
  - TREMOR [None]
